FAERS Safety Report 9472941 (Version 1)
Quarter: 2013Q3

REPORT INFORMATION
  Report Type: Spontaneous
  Country: US (occurrence: US)
  Receive Date: 20130823
  Receipt Date: 20130823
  Transmission Date: 20140515
  Serious: No
  Sender: FDA-Public Use
  Company Number: US-BRISTOL-MYERS SQUIBB COMPANY-17253378

PATIENT
  Age: 56 Year
  Sex: Female
  Weight: 61.68 kg

DRUGS (2)
  1. SPRYCEL (CML) TABS 100 MG [Suspect]
     Dates: start: 20121207
  2. VITAMIN D [Concomitant]

REACTIONS (3)
  - Insomnia [Unknown]
  - Nausea [Unknown]
  - Abdominal pain [Unknown]
